FAERS Safety Report 7686211-0 (Version None)
Quarter: 2011Q3

REPORT INFORMATION
  Report Type: 
  Country: None (occurrence: None)
  Receive Date: 20110816
  Receipt Date: 20110809
  Transmission Date: 20111222
  Serious: Yes (Hospitalization)
  Sender: FDA-Public Use
  Company Number: US-B.I. PHARMACEUTICALS,INC./RIDGEFIELD-2011-DE-04506GD

PATIENT
  Age: 44 Year
  Sex: Female

DRUGS (3)
  1. HYDROCHLOROTHIAZIDE [Concomitant]
     Indication: HYPERTENSION
  2. SIMAVASTATIN [Concomitant]
     Indication: HYPERLIPIDAEMIA
  3. CLONIDINE [Suspect]
     Indication: HYPERTENSION
     Dosage: 0.3 MG PATCH ONCE WEEKLY
     Route: 062

REACTIONS (5)
  - CORONARY ARTERY DISSECTION [None]
  - CHEST PAIN [None]
  - VOMITING [None]
  - FATIGUE [None]
  - OVERDOSE [None]
